FAERS Safety Report 4653103-0 (Version None)
Quarter: 2005Q2

REPORT INFORMATION
  Report Type: 
  Country: None (occurrence: None)
  Receive Date: 20050503
  Receipt Date: 20050420
  Transmission Date: 20051028
  Serious: Yes (Other)
  Sender: FDA-Public Use
  Company Number: 2005064319

PATIENT
  Age: 42 Year
  Sex: Female

DRUGS (3)
  1. BEXTRA [Suspect]
     Indication: INTERVERTEBRAL DISC PROTRUSION
     Dosage: 40 MG (20 MG, 2 IN 1 D), ORAL
     Route: 048
  2. CELEBREX [Suspect]
     Indication: INTERVERTEBRAL DISC PROTRUSION
     Dosage: 200 MG (100 MG, 2 IN 1 D), ORAL
     Route: 048
  3. ZITHROMAX [Suspect]
     Indication: UPPER RESPIRATORY TRACT INFECTION
     Dosage: ORAL
     Route: 048
     Dates: start: 20041101, end: 20050201

REACTIONS (17)
  - ABDOMINAL PAIN UPPER [None]
  - BLISTER [None]
  - BLOOD TEST ABNORMAL [None]
  - CHOLELITHIASIS [None]
  - CONSTIPATION [None]
  - DIARRHOEA [None]
  - DRUG EXPOSURE DURING PREGNANCY [None]
  - DRUG INEFFECTIVE [None]
  - DYSPEPSIA [None]
  - HAEMORRHOIDS [None]
  - LIVER DISORDER [None]
  - MALAISE [None]
  - NASAL MUCOSAL DISORDER [None]
  - NAUSEA [None]
  - PREGNANCY [None]
  - UPPER RESPIRATORY TRACT INFECTION [None]
  - VOMITING [None]
